FAERS Safety Report 12560094 (Version 2)
Quarter: 2019Q1

REPORT INFORMATION
  Report Type: Spontaneous
  Country: US (occurrence: US)
  Receive Date: 20160715
  Receipt Date: 20190302
  Transmission Date: 20190417
  Serious: No
  Sender: FDA-Public Use
  Company Number: US-JNJFOC-20160516134

PATIENT
  Age: 62 Year
  Sex: Female

DRUGS (2)
  1. WOMENS ROGAINE UNSCENTED [Suspect]
     Active Substance: MINOXIDIL
     Route: 061
  2. WOMENS ROGAINE UNSCENTED [Suspect]
     Active Substance: MINOXIDIL
     Indication: ALOPECIA
     Dosage: PEA SIZE
     Route: 061
     Dates: start: 20160422

REACTIONS (2)
  - Product administered at inappropriate site [Unknown]
  - Hair texture abnormal [Not Recovered/Not Resolved]
